FAERS Safety Report 10741888 (Version 1)
Quarter: 2015Q1

REPORT INFORMATION
  Report Type: Report from Study
  Country: US (occurrence: US)
  Receive Date: 20150127
  Receipt Date: 20150127
  Transmission Date: 20150721
  Serious: Yes (Life-Threatening, Hospitalization)
  Sender: FDA-Public Use
  Company Number: US-009507513-1501USA010320

PATIENT
  Age: 52 Year
  Sex: Male
  Weight: 74.1 kg

DRUGS (3)
  1. CYTARABINE. [Suspect]
     Active Substance: CYTARABINE
     Indication: ACUTE MYELOID LEUKAEMIA
     Dosage: 1500 MG/M2, QD (1500 MG/M2/DAY CONTINUOUS IV INFUSION ON DAYS 4-7)
     Route: 042
     Dates: start: 20150102, end: 20150106
  2. VORINOSTAT [Suspect]
     Active Substance: VORINOSTAT
     Indication: ACUTE MYELOID LEUKAEMIA
     Dosage: 500 MG, TID (DAYS 1-3)
     Route: 048
     Dates: start: 20141230, end: 20150101
  3. IDARUBICIN HYDROCHLORIDE. [Suspect]
     Active Substance: IDARUBICIN HYDROCHLORIDE
     Indication: ACUTE MYELOID LEUKAEMIA
     Dosage: 12 MG/M2, QD; IV OVER 15 MIN ON DAYS 4-6
     Route: 042
     Dates: start: 20150102, end: 20150104

REACTIONS (4)
  - Local swelling [Unknown]
  - Respiratory failure [Unknown]
  - Hypotension [Unknown]
  - Blood bilirubin increased [Unknown]

NARRATIVE: CASE EVENT DATE: 20150122
